FAERS Safety Report 10732080 (Version 1)
Quarter: 2015Q1

REPORT INFORMATION
  Report Type: Spontaneous
  Country: US (occurrence: None)
  Receive Date: 20150121
  Receipt Date: 20150121
  Transmission Date: 20150721
  Serious: Yes (Disabling)
  Sender: FDA-Public Use
  Company Number: None

PATIENT
  Age: 37 Year
  Sex: Female
  Weight: 62.14 kg

DRUGS (1)
  1. LEVOFLOXACIN. [Suspect]
     Active Substance: LEVOFLOXACIN
     Indication: URINARY TRACT INFECTION
     Route: 048
     Dates: start: 20141220, end: 20141226

REACTIONS (20)
  - Joint crepitation [None]
  - Fatigue [None]
  - Skin infection [None]
  - Muscle spasms [None]
  - Hypoaesthesia [None]
  - Pyrexia [None]
  - Anxiety [None]
  - Blood pressure decreased [None]
  - Peripheral swelling [None]
  - Muscular weakness [None]
  - Arthralgia [None]
  - Paraesthesia [None]
  - Feeling abnormal [None]
  - Depression [None]
  - Peripheral coldness [None]
  - Pain [None]
  - Tendon pain [None]
  - Disturbance in attention [None]
  - Eye pain [None]
  - Insomnia [None]

NARRATIVE: CASE EVENT DATE: 20141220
